FAERS Safety Report 6258061-3 (Version None)
Quarter: 2009Q3

REPORT INFORMATION
  Report Type: 
  Country: None (occurrence: None)
  Receive Date: 20090702
  Receipt Date: 20090622
  Transmission Date: 20100115
  Serious: Yes (Hospitalization, Other)
  Sender: FDA-Public Use
  Company Number: 2009S1004687

PATIENT
  Age: 37 Year
  Sex: Female

DRUGS (1)
  1. PHOSPOSODA FLAVOR (SODIUM PHOSPHATE DIBASIC/SODIUM PHOSPHATE MONOBASIC [Suspect]
     Indication: COLONOSCOPY
     Dosage: 90 ML; ORAL_SOL; PO; TOTAL
     Route: 048

REACTIONS (4)
  - HYPOAESTHESIA [None]
  - HYPOCALCAEMIA [None]
  - PARAESTHESIA [None]
  - TETANY [None]
